FAERS Safety Report 15253220 (Version 3)
Quarter: 2018Q4

REPORT INFORMATION
  Report Type: Report from Study
  Country: ES (occurrence: ES)
  Receive Date: 20180807
  Receipt Date: 20181009
  Transmission Date: 20190204
  Serious: Yes (Hospitalization)
  Sender: FDA-Public Use
  Company Number: ES-EISAI MEDICAL RESEARCH-EC-2018-043788

PATIENT
  Age: 12 Year
  Sex: Female
  Weight: 33 kg

DRUGS (6)
  1. PERAMPANEL [Suspect]
     Active Substance: PERAMPANEL
     Indication: PARTIAL SEIZURES
     Route: 048
     Dates: start: 20170812
  2. PERAMPANEL [Suspect]
     Active Substance: PERAMPANEL
     Dosage: UNKNOWN
     Route: 048
     Dates: end: 20180712
  3. PERAMPANEL [Suspect]
     Active Substance: PERAMPANEL
     Dosage: UNKNOWN
     Route: 048
     Dates: start: 20180713
  4. CARBAMAZEPINE. [Concomitant]
     Active Substance: CARBAMAZEPINE
  5. DIAZEPAM. [Concomitant]
     Active Substance: DIAZEPAM
  6. VALPROIC ACID. [Concomitant]
     Active Substance: VALPROIC ACID

REACTIONS (1)
  - Seizure [Recovered/Resolved]

NARRATIVE: CASE EVENT DATE: 20180803
